FAERS Safety Report 7222162-3 (Version None)
Quarter: 2011Q1

REPORT INFORMATION
  Report Type: 
  Country: None (occurrence: None)
  Receive Date: 20110104
  Receipt Date: 20101220
  Transmission Date: 20110831
  Serious: Yes (Life-Threatening, Hospitalization)
  Sender: FDA-Public Use
  Company Number: 2010BI035026

PATIENT
  Age: 57 Year
  Sex: Female

DRUGS (17)
  1. GASLON N_OD [Concomitant]
  2. GENINAX [Concomitant]
  3. GASTER [Concomitant]
  4. CYCLOPHOSPHAMIDE [Concomitant]
  5. POLARAMINE [Concomitant]
  6. MAGNESIUM OXIDE [Concomitant]
  7. RITUXIMAB [Concomitant]
  8. GARENOXACIN [Concomitant]
  9. ZEVALIN [Suspect]
     Indication: FOLLICLE CENTRE LYMPHOMA, FOLLICULAR GRADE I, II, III STAGE IV
     Dosage: 935 MBQ; 1X; IV
     Route: 042
     Dates: start: 20100309, end: 20100316
  10. LOXONIN [Concomitant]
  11. DOXORUBICIN HYDROCHLORIDE [Concomitant]
  12. VINCRISTINE SULFATE [Concomitant]
  13. PREDNISOLONE [Concomitant]
  14. GLUDEOXYGLUCOSE [Concomitant]
  15. MYSLEE [Concomitant]
  16. FERROUS CITRATE [Concomitant]
  17. RITUXIMAB [Concomitant]

REACTIONS (7)
  - NEUTROPHIL COUNT DECREASED [None]
  - ILEUS [None]
  - PLATELET COUNT DECREASED [None]
  - PYREXIA [None]
  - WHITE BLOOD CELL COUNT DECREASED [None]
  - ENTEROCOLITIS [None]
  - HAEMOGLOBIN DECREASED [None]
